FAERS Safety Report 24462475 (Version 1)
Quarter: 2024Q4

REPORT INFORMATION
  Report Type: Spontaneous
  Country: PL (occurrence: PL)
  Receive Date: 20241018
  Receipt Date: 20241018
  Transmission Date: 20250115
  Serious: Yes (Other)
  Sender: SANOFI AVENTIS
  Company Number: None

PATIENT
  Age: 56 Year
  Sex: Female
  Weight: 70 kg

DRUGS (1)
  1. LEFLUNOMIDE [Suspect]
     Active Substance: LEFLUNOMIDE
     Dosage: 20 MG
     Route: 048
     Dates: start: 20200226, end: 20200505

REACTIONS (1)
  - Rash [Unknown]

NARRATIVE: CASE EVENT DATE: 20200430
